FAERS Safety Report 11287881 (Version 1)
Quarter: 2015Q3

REPORT INFORMATION
  Report Type: Spontaneous
  Country: US (occurrence: US)
  Receive Date: 20150721
  Receipt Date: 20150721
  Transmission Date: 20151125
  Serious: No
  Sender: FDA-Public Use
  Company Number: US-ENDO PHARMACEUTICALS INC.-NYST20140007

PATIENT
  Sex: Male

DRUGS (2)
  1. KYOLIC GARLIC [Suspect]
     Active Substance: DIETARY SUPPLEMENT
     Indication: PRODUCT USED FOR UNKNOWN INDICATION
     Dosage: UNK
     Route: 048
  2. NYSTATIN SUSPENSION [Suspect]
     Active Substance: NYSTATIN
     Indication: ORAL FUNGAL INFECTION
     Dosage: UNK
     Route: 048

REACTIONS (2)
  - Gastrointestinal disorder [Unknown]
  - Fatigue [Unknown]
